FAERS Safety Report 9142636 (Version 1)
Quarter: 2013Q1

REPORT INFORMATION
  Report Type: Spontaneous
  Country: US (occurrence: US)
  Receive Date: 20130306
  Receipt Date: 20130306
  Transmission Date: 20140127
  Serious: Yes (Hospitalization)
  Sender: FDA-Public Use
  Company Number: PHEH2012US023203

PATIENT
  Age: 64 Year
  Sex: Female
  Weight: 56.69 kg

DRUGS (10)
  1. TOBI [Suspect]
     Dosage: 150 MG, BID FOR 28 DAYS ON THEN 28 DAYS OFF
  2. PULMOZYME [Suspect]
     Dosage: UNK
  3. AZITHROMYCIN [Concomitant]
     Dosage: UNK
  4. TEMAZEPAM [Concomitant]
     Dosage: UNK
  5. LATANOPROST [Concomitant]
     Dosage: UNK
  6. LUTEIN [Concomitant]
     Dosage: UNK
  7. GOTU KOLA [Concomitant]
     Dosage: UNK
  8. CALCIUM [Concomitant]
     Dosage: UNK
  9. CAYSTON [Concomitant]
     Dosage: UNK
  10. VITAMIN C [Concomitant]
     Dosage: 500 MG, UNK

REACTIONS (2)
  - Pseudomonas infection [Unknown]
  - Tinnitus [Unknown]
